FAERS Safety Report 7809634-5 (Version None)
Quarter: 2011Q4

REPORT INFORMATION
  Report Type: 
  Country: None (occurrence: None)
  Receive Date: 20111012
  Receipt Date: 20111007
  Transmission Date: 20120403
  Serious: Yes (Hospitalization)
  Sender: FDA-Public Use
  Company Number: FR-EISAI INC-E2080-00368-SPO-FR

PATIENT
  Sex: Female
  Weight: 43 kg

DRUGS (7)
  1. TOPIRAMATE [Concomitant]
     Indication: EPILEPSY
     Route: 048
     Dates: start: 20090306
  2. TOPIRAMATE [Concomitant]
     Dosage: DOSE INCREASED
     Route: 048
  3. CLONAZEPAM [Concomitant]
     Indication: EPILEPSY
     Route: 048
     Dates: start: 20090101
  4. INOVELON [Suspect]
     Indication: EPILEPSY
     Route: 048
     Dates: start: 20100720, end: 20100901
  5. VIMPAT [Concomitant]
     Indication: EPILEPSY
     Route: 048
     Dates: start: 20100204
  6. INOVELON [Suspect]
     Route: 048
     Dates: start: 20100901, end: 20110118
  7. TEGRETOL [Concomitant]
     Indication: EPILEPSY
     Route: 048
     Dates: start: 19920101

REACTIONS (3)
  - PYREXIA [None]
  - DECREASED APPETITE [None]
  - HEADACHE [None]
